FAERS Safety Report 23154227 (Version 1)
Quarter: 2023Q4

REPORT INFORMATION
  Report Type: Spontaneous
  Country: FR (occurrence: FR)
  Receive Date: 20231107
  Receipt Date: 20231107
  Transmission Date: 20240110
  Serious: Yes (Life-Threatening)
  Sender: FDA-Public Use
  Company Number: FR-SUN PHARMACEUTICAL INDUSTRIES LTD-2023RR-416576

PATIENT
  Age: 64 Year
  Sex: Female

DRUGS (6)
  1. PREGABALIN [Interacting]
     Active Substance: PREGABALIN
     Indication: Pudendal canal syndrome
     Dosage: 600 MILLIGRAM, DAILY
     Route: 048
  2. ZOPICLONE [Interacting]
     Active Substance: ZOPICLONE
     Indication: Sleep disorder
     Dosage: 3.75 MILLIGRAM, DAILY
     Route: 048
     Dates: end: 20230626
  3. ATARAX [Interacting]
     Active Substance: HYDROXYZINE HYDROCHLORIDE
     Indication: Pudendal canal syndrome
     Dosage: 3 DOSAGE FORM, 1DOSE/ASNECESSA
     Route: 048
     Dates: start: 202306, end: 20230626
  4. CYAMEMAZINE [Interacting]
     Active Substance: CYAMEMAZINE
     Indication: Mixed anxiety and depressive disorder
     Dosage: 1.5 DOSAGE FORM, DAILY
     Route: 048
     Dates: end: 20230626
  5. MIRTAZAPINE [Interacting]
     Active Substance: MIRTAZAPINE
     Indication: Pudendal canal syndrome
     Dosage: 45 MILLIGRAM, DAILY
     Route: 048
     Dates: end: 20230626
  6. BROMAZEPAM [Interacting]
     Active Substance: BROMAZEPAM
     Indication: Mixed anxiety and depressive disorder
     Dosage: 4.5 MILLIGRAM, DAILY
     Route: 048
     Dates: end: 20230626

REACTIONS (3)
  - Drug interaction [Recovered/Resolved]
  - Respiratory acidosis [Recovered/Resolved]
  - Hypercapnia [Recovered/Resolved]

NARRATIVE: CASE EVENT DATE: 20230626
